FAERS Safety Report 13243004 (Version 1)
Quarter: 2017Q1

REPORT INFORMATION
  Report Type: Spontaneous
  Country: US (occurrence: US)
  Receive Date: 20170216
  Receipt Date: 20170216
  Transmission Date: 20170428
  Serious: No
  Sender: FDA-Public Use
  Company Number: US-TEVA-739396ACC

PATIENT
  Age: 58 Year
  Sex: Female

DRUGS (8)
  1. VALSART [Concomitant]
     Active Substance: VALSARTAN
  2. ASPIRIN. [Concomitant]
     Active Substance: ASPIRIN
  3. BIOTIN [Concomitant]
     Active Substance: BIOTIN
  4. ZINC. [Concomitant]
     Active Substance: ZINC
  5. COPAXONE [Suspect]
     Active Substance: GLATIRAMER ACETATE
     Indication: MULTIPLE SCLEROSIS
     Route: 058
     Dates: start: 20161223
  6. CALC CITR [Concomitant]
  7. GLUCOSAMINE [Concomitant]
     Active Substance: GLUCOSAMINE
  8. GABAPENTIN. [Concomitant]
     Active Substance: GABAPENTIN

REACTIONS (1)
  - Fall [Unknown]

NARRATIVE: CASE EVENT DATE: 20170105
